FAERS Safety Report 4273852-6 (Version None)
Quarter: 2004Q1

REPORT INFORMATION
  Report Type: 
  Country: None (occurrence: None)
  Receive Date: 20040114
  Receipt Date: 20040109
  Transmission Date: 20041129
  Serious: Yes (Death)
  Sender: FDA-Public Use
  Company Number: INCL-NO-0401L-0001 (0)

PATIENT
  Age: 56 Year
  Sex: Female

DRUGS (3)
  1. INDIUM IN111 CHLORIDE (INDIUM IN111 CHLORIDE) [Suspect]
     Indication: PANCYTOPENIA
     Dosage: 74 MBQ, SINGLE DOSE, I.V.
     Route: 042
     Dates: start: 19990101, end: 19990101
  2. PREDNISOLONE [Concomitant]
  3. AZATHIOPRINE [Concomitant]

REACTIONS (2)
  - LUNG INFILTRATION [None]
  - PNEUMOCYSTIS CARINII PNEUMONIA [None]
